FAERS Safety Report 25563887 (Version 1)
Quarter: 2025Q3

REPORT INFORMATION
  Report Type: Spontaneous
  Country: US (occurrence: US)
  Receive Date: 20250716
  Receipt Date: 20250716
  Transmission Date: 20251021
  Serious: No
  Sender: RECORDATI
  Company Number: US-RECORDATI RARE DISEASE INC.-2025002174

PATIENT
  Sex: Female

DRUGS (1)
  1. PANHEMATIN [Suspect]
     Active Substance: HEMIN
     Indication: Product used for unknown indication

REACTIONS (2)
  - Neurological symptom [Unknown]
  - Abdominal pain [Unknown]
